FAERS Safety Report 12330702 (Version 1)
Quarter: 2016Q2

REPORT INFORMATION
  Report Type: Spontaneous
  Country: US (occurrence: US)
  Receive Date: 20160504
  Receipt Date: 20160504
  Transmission Date: 20160815
  Serious: Yes (Hospitalization, Other)
  Sender: FDA-Public Use
  Company Number: US-GLENMARK PHARMACEUTICALS INC, USA.-2016GMK022636

PATIENT
  Age: 71 Year
  Sex: Male

DRUGS (38)
  1. TACROLIMUS. [Interacting]
     Active Substance: TACROLIMUS
     Dosage: 1.5 MG, QD (Q24H) ON SCT DAY + 17
     Route: 042
  2. FLUCONAZOLE. [Concomitant]
     Active Substance: FLUCONAZOLE
     Route: 048
  3. VANCOMYCIN [Concomitant]
     Active Substance: VANCOMYCIN
     Indication: PRODUCT USED FOR UNKNOWN INDICATION
     Dosage: 1 G, BID (Q12H) ON SCT DAY + 18
     Route: 042
  4. SIMVASTATIN. [Concomitant]
     Active Substance: SIMVASTATIN
     Indication: PRODUCT USED FOR UNKNOWN INDICATION
     Dosage: 40 MG, HS ON SCT DAY + 11 (PRIOR TO CONFUSION)
     Route: 048
  5. MELPHALAN [Concomitant]
     Active Substance: MELPHALAN
     Indication: STEM CELL TRANSPLANT
  6. CEFEPIME [Concomitant]
     Active Substance: CEFEPIME HYDROCHLORIDE
     Dosage: 2 G, TID (Q8H) ON SCT DAY + 17
     Route: 042
  7. ENTECAVIR. [Concomitant]
     Active Substance: ENTECAVIR
     Dosage: 0.5 MG, QD ON SCT DAY + 17 (IMMEDIATELY PRIOR TO CONFUSION)
     Route: 048
  8. ESOMEPRAZOLE [Concomitant]
     Active Substance: ESOMEPRAZOLE
     Indication: PRODUCT USED FOR UNKNOWN INDICATION
     Dosage: 40 MG, QD ON SCT DAY + 11 (PRIOR TO CONFUSION)
     Route: 048
  9. INSULIN GLARGINE [Concomitant]
     Active Substance: INSULIN GLARGINE
     Indication: PRODUCT USED FOR UNKNOWN INDICATION
     Dosage: 10 UNITS, HS + 11 (PRIOR TO CONFUSION)
     Route: 058
  10. VORICONAZOLE TABLETS [Interacting]
     Active Substance: VORICONAZOLE
     Dosage: 300 MG, BID (EVERY 12 H)
     Route: 048
  11. LORAZEPAM. [Concomitant]
     Active Substance: LORAZEPAM
     Indication: SEDATION
     Dosage: 1 MG, QID (Q6H AS NEEDED) ON SCT DAY +11 (PRIOR TO CONFUSION)
     Route: 042
  12. LORAZEPAM. [Concomitant]
     Active Substance: LORAZEPAM
     Dosage: 1 MG, QID (Q6H AS NEEDED) ON SCT DAY + 17 (IMMEDIATELY PRIOR TO CONFUSION)
     Route: 042
  13. TEMAZEPAM. [Concomitant]
     Active Substance: TEMAZEPAM
     Dosage: 15 MG, HS AS NEEDED ON SCT DAY + 17 (IMMEDIATELY PRIOR TO CONFUSION)
     Route: 048
  14. VORICONAZOLE TABLETS [Suspect]
     Active Substance: VORICONAZOLE
     Indication: PRODUCT USED FOR UNKNOWN INDICATION
     Dosage: 450 MG, BID (EVERY 12 H)
     Route: 042
  15. TACROLIMUS. [Interacting]
     Active Substance: TACROLIMUS
     Indication: PROPHYLAXIS AGAINST GRAFT VERSUS HOST DISEASE
     Dosage: 1.5 MG, QD (Q24H) ON SCT DAY + 11
     Route: 042
  16. FLUDARABINE [Concomitant]
     Active Substance: FLUDARABINE PHOSPHATE
     Indication: STEM CELL TRANSPLANT
  17. ACYCLOVIR                          /00587301/ [Concomitant]
     Active Substance: ACYCLOVIR
     Dosage: 800 MG, BID (Q12H) ON SCT DAY + 17
     Route: 048
  18. ENTECAVIR. [Concomitant]
     Active Substance: ENTECAVIR
     Indication: PRODUCT USED FOR UNKNOWN INDICATION
     Dosage: 0.5 MG, QD ON SCT DAY + 11 (PRIOR TO CONFUSION)
     Route: 048
  19. LOSARTAN. [Concomitant]
     Active Substance: LOSARTAN
     Dosage: 100 MG, QD ON SCT DAY + 17 (IMMEDIATELY PRIOR TO CONFUSION)
     Route: 048
  20. METOPROLOL. [Concomitant]
     Active Substance: METOPROLOL
     Indication: PRODUCT USED FOR UNKNOWN INDICATION
     Dosage: 12.5 MG, BID ON SCT DAY + 17 (IMMEDIATELY PRIOR TO CONFUSION)
     Route: 048
  21. TEMAZEPAM. [Concomitant]
     Active Substance: TEMAZEPAM
     Indication: SEDATION
     Dosage: 15 MG, HS AS NEEDED ON SCT DAY + 11 (PRIOR TO CONFUSION)
     Route: 048
  22. DIPHENHYDRAMINE. [Concomitant]
     Active Substance: DIPHENHYDRAMINE
     Indication: SEDATION
     Dosage: 25 MG, QID AS NEEDED ON SCT DAY + 11 (PRIOR TO CONFUSION)
     Route: 042
  23. DIPHENHYDRAMINE. [Concomitant]
     Active Substance: DIPHENHYDRAMINE
     Dosage: UNK
  24. SIMVASTATIN. [Concomitant]
     Active Substance: SIMVASTATIN
     Dosage: 40 MG, HS ON SCT DAY + 17 (IMMEDIATELY PRIOR TO CONFUSION)
     Route: 048
  25. TACROLIMUS. [Interacting]
     Active Substance: TACROLIMUS
     Dosage: 1 MG, QD (Q24H) ON SCT DAY + 18
     Route: 042
  26. CEFEPIME [Concomitant]
     Active Substance: CEFEPIME HYDROCHLORIDE
     Indication: PRODUCT USED FOR UNKNOWN INDICATION
     Dosage: 2 G, TID (Q8H) ON SCT DAY + 11
     Route: 042
  27. ESOMEPRAZOLE [Concomitant]
     Active Substance: ESOMEPRAZOLE
     Dosage: 40 MG, QD ON SCT DAY + 17 (IMMEDIATELY PRIOR TO CONFUSION)
     Route: 048
  28. INSULIN GLARGINE [Concomitant]
     Active Substance: INSULIN GLARGINE
     Dosage: 10 UNITS, HS ON SCT DAY + 17 (IMMEDIATELY PRIOR TO CONFUSION)
     Route: 058
  29. ONDANSETRON [Concomitant]
     Active Substance: ONDANSETRON
     Indication: PRODUCT USED FOR UNKNOWN INDICATION
     Dosage: 8 MG, TID AS NEEDED ON SCT DAY + 11 (PRIOR TO CONFUSION)
     Route: 042
  30. ONDANSETRON [Concomitant]
     Active Substance: ONDANSETRON
     Dosage: 8 MG, TID Q8H AS NEEDED ON SCT DAY + 17 (IMMEDIATELY PRIOR TO CONFUSION)
     Route: 042
  31. LOSARTAN. [Concomitant]
     Active Substance: LOSARTAN
     Indication: PRODUCT USED FOR UNKNOWN INDICATION
     Dosage: 100 MG, QD ON SCT DAY + 11 (PRIOR TO CONFUSION)
     Route: 048
  32. URSODIOL. [Concomitant]
     Active Substance: URSODIOL
     Dosage: 600 MG, BID ON SCT DAY + 17 (IMMEDIATELY PRIOR TO CONFUSION)
     Route: 048
  33. METHOTREXATE [Concomitant]
     Active Substance: METHOTREXATE
     Indication: PROPHYLAXIS AGAINST GRAFT VERSUS HOST DISEASE
  34. ACYCLOVIR                          /00587301/ [Concomitant]
     Active Substance: ACYCLOVIR
     Indication: ANTIBIOTIC PROPHYLAXIS
     Dosage: 800 MG, BID (Q12H) ON SCT DAY + 11
     Route: 048
  35. ACYCLOVIR                          /00587301/ [Concomitant]
     Active Substance: ACYCLOVIR
     Dosage: 800 MG, OD (Q24H) ON SCT +18
     Route: 042
  36. MEROPENEM. [Concomitant]
     Active Substance: MEROPENEM
     Indication: PRODUCT USED FOR UNKNOWN INDICATION
     Dosage: 1 G, TID (Q8H) ON SCT DAY + 18
     Route: 042
  37. DIPHENHYDRAMINE. [Concomitant]
     Active Substance: DIPHENHYDRAMINE
     Dosage: 25 MG, QID AS NEEDED ON SCT DAY + 17 (IMMEDIATELY PRIOR TO CONFUSION)
     Route: 042
  38. URSODIOL. [Concomitant]
     Active Substance: URSODIOL
     Indication: PRODUCT USED FOR UNKNOWN INDICATION
     Dosage: 600 MG, BID ON SCT DAY + 11 (PRIOR TO CONFUSION)
     Route: 048

REACTIONS (3)
  - Mental status changes [Unknown]
  - Drug interaction [Unknown]
  - Confusional state [Recovered/Resolved]
